FAERS Safety Report 8950680 (Version 2)
Quarter: 2013Q1

REPORT INFORMATION
  Report Type: Report from Study
  Country: DE (occurrence: DE)
  Receive Date: 20121206
  Receipt Date: 20130328
  Transmission Date: 20140127
  Serious: Yes (Hospitalization)
  Sender: FDA-Public Use
  Company Number: DE-BAXTER-2012BAX025656

PATIENT
  Sex: Female

DRUGS (18)
  1. ENDOXAN 1G [Suspect]
     Indication: B-CELL LYMPHOMA
     Route: 042
     Dates: start: 20121025, end: 20121025
  2. RITUXIMAB [Suspect]
     Indication: B-CELL LYMPHOMA
     Route: 042
     Dates: start: 20121105, end: 20121105
  3. RITUXIMAB [Suspect]
     Route: 042
     Dates: start: 20121210
  4. PEGFILGRASTIM [Suspect]
     Indication: B-CELL LYMPHOMA
     Route: 058
     Dates: start: 20121029, end: 20121029
  5. VINCRISTINE [Suspect]
     Indication: B-CELL LYMPHOMA
     Route: 042
     Dates: start: 20121025, end: 20121025
  6. PREDNISONE [Suspect]
     Indication: B-CELL LYMPHOMA
     Route: 065
     Dates: start: 20121023, end: 20121027
  7. DOXORUBICIN [Suspect]
     Indication: B-CELL LYMPHOMA
     Route: 042
     Dates: start: 20121025, end: 20121025
  8. DOXORUBICIN [Suspect]
     Route: 042
     Dates: start: 20121210
  9. ENALAPRIL MALEATE [Concomitant]
     Indication: HYPERTENSION
     Route: 048
  10. BISOPROLOL [Concomitant]
     Indication: CORONARY ARTERY DISEASE
     Route: 048
  11. FUROSEMIDE [Concomitant]
     Indication: PRODUCT USED FOR UNKNOWN INDICATION
     Route: 048
  12. AMLODIPINE [Concomitant]
     Indication: HYPERTENSION
     Route: 048
  13. ACETYLSALICYLIC ACID [Concomitant]
     Indication: ANGINA PECTORIS
     Route: 048
  14. PANTOPRAZOLE SODIUM [Concomitant]
     Indication: PROPHYLAXIS AGAINST GASTROINTESTINAL ULCER
     Route: 048
  15. SODIUM BICARBONATE [Concomitant]
     Indication: PROPHYLAXIS
     Route: 048
     Dates: start: 20121023
  16. ALLOPURINOL [Concomitant]
     Indication: HYPERURICAEMIA
     Route: 048
  17. ENOXAPARIN SODIUM [Concomitant]
     Indication: ANGINA PECTORIS
     Route: 058
     Dates: start: 20121108
  18. ENOXAPARIN SODIUM [Concomitant]
     Route: 058

REACTIONS (2)
  - Atrial fibrillation [Recovered/Resolved]
  - Mitral valve disease [Recovered/Resolved with Sequelae]
